FAERS Safety Report 10197223 (Version 2)
Quarter: 2014Q2

REPORT INFORMATION
  Report Type: Spontaneous
  Country: BR (occurrence: BR)
  Receive Date: 20140527
  Receipt Date: 20140529
  Transmission Date: 20141212
  Serious: Yes (Other)
  Sender: FDA-Public Use
  Company Number: BR-GLAXOSMITHKLINE-A1074428A

PATIENT
  Age: 8 Year
  Sex: Male
  Weight: 37 kg

DRUGS (5)
  1. FLIXOTIDE [Suspect]
     Indication: ASTHMATIC CRISIS
     Dosage: 50MCG UNKNOWN
     Route: 065
     Dates: start: 201212, end: 20140519
  2. SERETIDE [Suspect]
     Indication: ASTHMATIC CRISIS
     Route: 065
     Dates: start: 2010, end: 2011
  3. VACCINE (UNSPECIFIED) [Concomitant]
  4. OMNARIS [Concomitant]
  5. SINGULAIR [Concomitant]

REACTIONS (3)
  - Asthmatic crisis [Not Recovered/Not Resolved]
  - Drug ineffective [Unknown]
  - Drug administration error [Unknown]
